FAERS Safety Report 8015231 (Version 5)
Quarter: 2013Q1

REPORT INFORMATION
  Report Type: Spontaneous
  Country: FR (occurrence: FR)
  Receive Date: 20110629
  Receipt Date: 20130204
  Transmission Date: 20140127
  Serious: Yes (Life-Threatening, Hospitalization)
  Sender: FDA-Public Use
  Company Number: FR-SP-2011-03702

PATIENT
  Age: 72 Year
  Sex: Male

DRUGS (9)
  1. IMMUCYST 81 MG [Suspect]
     Indication: TRANSITIONAL CELL CARCINOMA
     Route: 043
     Dates: start: 20110331, end: 20110331
  2. AMLOR (AMLODIPINE) [Concomitant]
  3. TRIATEC (RAMIPRIL) [Concomitant]
  4. NEURONTIN (GABAPENTINE) [Concomitant]
  5. INEXIUM (ESOMEPRAZOLE) [Concomitant]
  6. CORDARONE (AMIODARONE) [Concomitant]
  7. LASILIX (FUROSEMIDE) [Concomitant]
  8. KAYEXALATE [Concomitant]
  9. EUPRESSYL (URAPIDIL) [Concomitant]

REACTIONS (8)
  - Atrial fibrillation [Recovered/Resolved]
  - Bovine tuberculosis [Recovered/Resolved]
  - Sepsis [Recovered/Resolved]
  - Acute respiratory distress syndrome [Recovered/Resolved]
  - Chills [Recovered/Resolved]
  - Hypotension [Recovered/Resolved]
  - Pyrexia [Recovered/Resolved]
  - Asthenia [Recovered/Resolved]
